FAERS Safety Report 19506483 (Version 1)
Quarter: 2021Q3

REPORT INFORMATION
  Report Type: Spontaneous
  Country: FR (occurrence: FR)
  Receive Date: 20210708
  Receipt Date: 20210708
  Transmission Date: 20211014
  Serious: Yes (Hospitalization)
  Sender: FDA-Public Use
  Company Number: FR-ACCORD-230813

PATIENT
  Age: 77 Year
  Sex: Female

DRUGS (2)
  1. METHOTREXATE MYLAN [Interacting]
     Active Substance: METHOTREXATE SODIUM
     Indication: CENTRAL NERVOUS SYSTEM LYMPHOMA
     Route: 042
     Dates: start: 20210428, end: 20210428
  2. LEVETIRACETAM. [Suspect]
     Active Substance: LEVETIRACETAM
     Indication: CENTRAL NERVOUS SYSTEM LYMPHOMA
     Route: 048
     Dates: start: 20210423, end: 20210429

REACTIONS (3)
  - Drug level increased [Recovered/Resolved]
  - Off label use [Unknown]
  - Blood creatinine increased [Recovered/Resolved]

NARRATIVE: CASE EVENT DATE: 20210429
